FAERS Safety Report 26070543 (Version 2)
Quarter: 2025Q4

REPORT INFORMATION
  Report Type: Spontaneous
  Country: US (occurrence: US)
  Receive Date: 20251120
  Receipt Date: 20251211
  Transmission Date: 20260118
  Serious: No
  Sender: SANOFI AVENTIS
  Company Number: US-SA-2025SA345559

PATIENT
  Sex: Female
  Weight: 42.73 kg

DRUGS (25)
  1. DUPIXENT [Suspect]
     Active Substance: DUPILUMAB
     Indication: Eosinophilic oesophagitis
     Dosage: 300 MG, QW
     Route: 058
  2. DOCUSATE SODIUM [Concomitant]
     Active Substance: DOCUSATE SODIUM
     Dosage: UNK
  3. COENZYME Q10 [Concomitant]
     Active Substance: DIETARY SUPPLEMENT\UBIDECARENONE
     Dosage: UNK
  4. ALBUTEROL SULFATE [Concomitant]
     Active Substance: ALBUTEROL SULFATE
     Dosage: UNK
  5. MULTAQ [Concomitant]
     Active Substance: DRONEDARONE
     Dosage: UNK
  6. EZETIMIBE [Concomitant]
     Active Substance: EZETIMIBE
     Dosage: UNK
  7. FAMOTIDINE [Concomitant]
     Active Substance: FAMOTIDINE
     Dosage: UNK
  8. BETA GLUCAN [Concomitant]
     Active Substance: BETA GLUCAN
     Dosage: UNK
  9. ESSENTIAL AMINO ACID MIX [Concomitant]
     Dosage: UNK
  10. MAGNESIUM GLYCINATE [Concomitant]
     Active Substance: MAGNESIUM GLYCINATE
     Dosage: UNK
  11. CALCIUM CARBONATE [Concomitant]
     Active Substance: CALCIUM CARBONATE
     Dosage: UNK
  12. SIMETHICONE (DIMETHICONE) [Concomitant]
     Active Substance: DIMETHICONE
     Dosage: UNK
  13. LICORICE [Concomitant]
     Active Substance: LICORICE
     Dosage: UNK
  14. ABONEUP [Concomitant]
     Dosage: UNK
  15. MELATONIN [Concomitant]
     Active Substance: MELATONIN
     Dosage: UNK
  16. RECLAST [Concomitant]
     Active Substance: ZOLEDRONIC ACID
     Dosage: UNK
  17. ALLEGRA ALLERGY [Concomitant]
     Active Substance: FEXOFENADINE HYDROCHLORIDE
     Dosage: UNK
  18. COLLAGENASE [Concomitant]
     Active Substance: COLLAGENASE CLOSTRIDIUM HISTOLYTICUM
     Dosage: UNK
  19. CURCUMIN [Concomitant]
     Active Substance: CURCUMIN
     Dosage: UNK
  20. LACTOBACILLUS ACIDOPHILUS [Concomitant]
     Active Substance: LACTOBACILLUS ACIDOPHILUS
     Dosage: UNK
  21. QUERCETIN [Concomitant]
     Active Substance: QUERCETIN
     Dosage: UNK
  22. VITAMIN D3 K2 [Concomitant]
     Dosage: UNK
  23. VITAMINS [Concomitant]
     Active Substance: VITAMINS
     Dosage: UNK
  24. GRAPESEED [Concomitant]
     Dosage: UNK
  25. GLUCOSAMINE SULFATE POTASSIUM CHLORIDE [Concomitant]
     Active Substance: GLUCOSAMINE SULFATE POTASSIUM CHLORIDE
     Dosage: UNK

REACTIONS (5)
  - Injection site vesicles [Unknown]
  - Dysphonia [Unknown]
  - Throat clearing [Unknown]
  - Rhinorrhoea [Unknown]
  - Eosinophilic oesophagitis [Unknown]
